FAERS Safety Report 8281433-2 (Version None)
Quarter: 2012Q1

REPORT INFORMATION
  Report Type: 
  Country: None (occurrence: None)
  Receive Date: 20120316
  Receipt Date: 20100803
  Transmission Date: 20120608
  Serious: Yes (Other)
  Sender: FDA-Public Use
  Company Number: PHHY2010US50759

PATIENT
  Age: 56 Year
  Sex: Female
  Weight: 249.8 kg

DRUGS (11)
  1. TYLOX [Concomitant]
  2. TEKTURNA [Suspect]
     Indication: HYPERTENSION
     Dosage: 300MG DAILY
     Dates: start: 20090828
  3. AMLODIPINE [Concomitant]
  4. METFORMIN HCL [Concomitant]
  5. TEKTURNA HCT [Suspect]
     Indication: HYPERTENSION
     Dosage: 300/25 MG DAILY, ORAL
     Route: 048
     Dates: start: 20100512, end: 20100803
  6. LEVEMIR (INSULIN DETEMIR), 90 U [Concomitant]
  7. CODEINE SULFATE [Concomitant]
  8. NORVASC [Concomitant]
  9. BYSTOLIC [Concomitant]
  10. OXYCONTIN (OXYCODONE HYROCHLORIDE), 10MG [Concomitant]
  11. NEUROBENE (CYANOCOBALAMIN) [Concomitant]

REACTIONS (5)
  - CARBON DIOXIDE INCREASED [None]
  - BLOOD UREA INCREASED [None]
  - HYPERKALAEMIA [None]
  - BLOOD GLUCOSE INCREASED [None]
  - BLOOD CREATINE INCREASED [None]
